FAERS Safety Report 6743585-2 (Version None)
Quarter: 2010Q2

REPORT INFORMATION
  Report Type: 
  Country: None (occurrence: None)
  Receive Date: 20100526
  Receipt Date: 20100526
  Transmission Date: 20101027
  Serious: Yes (Hospitalization)
  Sender: FDA-Public Use
  Company Number: None

PATIENT
  Sex: Female
  Weight: 63.9572 kg

DRUGS (2)
  1. BIAXIN XL [Suspect]
     Indication: BRONCHITIS
     Dosage: 2 PO QD X 10 D
     Dates: start: 20100419, end: 20100429
  2. SIMVASTATIN [Suspect]
     Indication: BLOOD CHOLESTEROL INCREASED
     Dosage: 80 MG 1 PO QD

REACTIONS (2)
  - BRONCHITIS [None]
  - RHABDOMYOLYSIS [None]
